FAERS Safety Report 25115691 (Version 3)
Quarter: 2025Q4

REPORT INFORMATION
  Report Type: Report from Study
  Country: CO (occurrence: CO)
  Receive Date: 20250325
  Receipt Date: 20251006
  Transmission Date: 20260117
  Serious: Yes (Hospitalization, Other)
  Sender: ABBVIE
  Company Number: CO-ABBVIE-6191104

PATIENT
  Sex: Male

DRUGS (1)
  1. VENCLEXTA [Suspect]
     Active Substance: VENETOCLAX
     Indication: Acute myeloid leukaemia
     Dosage: STRENGTH: 100 MG?21-DAY CYCLE
     Route: 048
     Dates: start: 20200506, end: 20250125

REACTIONS (9)
  - Spinal disorder [Recovering/Resolving]
  - Dengue fever [Recovered/Resolved]
  - Localised infection [Recovering/Resolving]
  - Myelitis [Recovering/Resolving]
  - Unevaluable event [Recovering/Resolving]
  - Cerebral haemorrhage [Recovered/Resolved]
  - Mobility decreased [Recovering/Resolving]
  - Weight decreased [Recovering/Resolving]
  - Inflammation [Recovering/Resolving]
